FAERS Safety Report 8885165 (Version 2)
Quarter: 2012Q4

REPORT INFORMATION
  Report Type: 
  Country: US (occurrence: US)
  Receive Date: 20121105
  Receipt Date: 20121122
  Transmission Date: 20130627
  Serious: No
  Sender: FDA-Public Use
  Company Number: US-BIOGENIDEC-2012BI048917

PATIENT
  Age: 59 Year
  Sex: Female

DRUGS (1)
  1. AVONEX [Suspect]
     Indication: MULTIPLE SCLEROSIS
     Route: 030
     Dates: start: 20121016

REACTIONS (8)
  - Dyspepsia [Recovered/Resolved]
  - Back pain [Recovered/Resolved]
  - Influenza like illness [Recovered/Resolved]
  - Heart rate increased [Recovered/Resolved]
  - Muscle tightness [Recovered/Resolved]
  - Tachycardia [Unknown]
  - Nausea [Unknown]
  - Diarrhoea [Unknown]
